FAERS Safety Report 6505150-1 (Version None)
Quarter: 2009Q4

REPORT INFORMATION
  Report Type: 
  Country: None (occurrence: None)
  Receive Date: 20091218
  Receipt Date: 20091209
  Transmission Date: 20100525
  Serious: Yes (Hospitalization, Other)
  Sender: FDA-Public Use
  Company Number: PHHY2009CA48086

PATIENT
  Sex: Female

DRUGS (9)
  1. ACLASTA/ZOLEDRONATE T29581+A+ [Suspect]
     Dosage: 5 MG / 100 ML, YEARLY
     Dates: start: 20081106
  2. ACTONEL [Concomitant]
     Dosage: 35 UNK, WEEKLY
     Dates: start: 20040907, end: 20080828
  3. DIDRONEL [Concomitant]
     Dosage: 400 MG, DAILY
  4. EVISTA [Concomitant]
     Dosage: 670 MG, DAILY
  5. HORMONES AND RELATED AGENTS (HRT) [Concomitant]
     Dosage: UNK
  6. FORTEO [Concomitant]
     Dosage: 20 MG, DAILY
  7. MIACALCIN [Concomitant]
     Dosage: 200 UI, DAILY
     Route: 045
  8. VITAMIN D [Concomitant]
     Dosage: 1000 MG, QD
     Dates: start: 20040101
  9. CALCIUM [Concomitant]
     Dosage: 200 MG, QD

REACTIONS (2)
  - FALL [None]
  - PELVIC FRACTURE [None]
